FAERS Safety Report 21792419 (Version 2)
Quarter: 2023Q4

REPORT INFORMATION
  Report Type: Other
  Country: TR (occurrence: TR)
  Receive Date: 20221229
  Receipt Date: 20231022
  Transmission Date: 20240110
  Serious: Yes (Hospitalization, Congenital Anomaly, Other)
  Sender: FDA-Public Use
  Company Number: TR-DEXPHARM-20222674

PATIENT

DRUGS (2)
  1. LEVETIRACETAM [Interacting]
     Active Substance: LEVETIRACETAM
     Dosage: 1000 MG/DAY
  2. CARBAMAZEPINE [Interacting]
     Active Substance: CARBAMAZEPINE
     Dosage: 1200 MG/DAY

REACTIONS (3)
  - Epilepsy congenital [Unknown]
  - Paternal exposure before pregnancy [Unknown]
  - Drug interaction [Unknown]
